FAERS Safety Report 22201426 (Version 1)
Quarter: 2023Q2

REPORT INFORMATION
  Report Type: Spontaneous
  Country: US (occurrence: None)
  Receive Date: 20230411
  Receipt Date: 20230411
  Transmission Date: 20230722
  Serious: No
  Sender: FDA-Public Use
  Company Number: None

PATIENT
  Age: 24 Year
  Sex: Male
  Weight: 72.81 kg

DRUGS (2)
  1. CANNABIS SATIVA SUBSP. INDICA TOP [Suspect]
     Active Substance: CANNABIS SATIVA SUBSP. INDICA TOP
     Dosage: FREQUENCY : AT BEDTIME;?
     Route: 048
     Dates: end: 20220413
  2. MELATONIN [Concomitant]

REACTIONS (3)
  - Abdominal pain [None]
  - Discomfort [None]
  - Muscle spasms [None]

NARRATIVE: CASE EVENT DATE: 20220413
